FAERS Safety Report 6901582-8 (Version None)
Quarter: 2010Q3

REPORT INFORMATION
  Report Type: 
  Country: None (occurrence: None)
  Receive Date: 20100803
  Receipt Date: 20080229
  Transmission Date: 20110219
  Serious: No
  Sender: FDA-Public Use
  Company Number: US-PFIZER INC-2008017434

PATIENT
  Sex: Female
  Weight: 72.6 kg

DRUGS (7)
  1. LYRICA [Suspect]
     Indication: FIBROMYALGIA
     Route: 048
     Dates: start: 20060101
  2. LEVOXYL [Concomitant]
     Route: 048
  3. CRESTOR [Concomitant]
     Route: 048
  4. PAXIL [Concomitant]
     Route: 048
  5. CLONAZEPAM [Concomitant]
     Route: 048
  6. CELEBREX [Concomitant]
     Route: 048
  7. MORPHINE SULFATE [Concomitant]
     Route: 048

REACTIONS (2)
  - DRUG INEFFECTIVE [None]
  - SOMNOLENCE [None]
